FAERS Safety Report 7656705-2 (Version None)
Quarter: 2011Q3

REPORT INFORMATION
  Report Type: 
  Country: None (occurrence: None)
  Receive Date: 20110801
  Receipt Date: 20110719
  Transmission Date: 20111222
  Serious: Yes (Hospitalization, Other)
  Sender: FDA-Public Use
  Company Number: 2011SP033717

PATIENT
  Age: 34 Year
  Sex: Female

DRUGS (2)
  1. PANDEMRIX (INFLUENZA VACCINE) [Suspect]
     Dates: start: 20091111
  2. NUVARING [Suspect]
     Indication: CONTRACEPTION
     Dates: start: 20091113, end: 20100701

REACTIONS (7)
  - PRURITUS [None]
  - URTICARIA [None]
  - ANGIOEDEMA [None]
  - GASTROINTESTINAL CANDIDIASIS [None]
  - EYE SWELLING [None]
  - ALLERGY TO ANIMAL [None]
  - LIP SWELLING [None]
